FAERS Safety Report 19176479 (Version 2)
Quarter: 2021Q2

REPORT INFORMATION
  Report Type: Spontaneous
  Country: US (occurrence: US)
  Receive Date: 20210423
  Receipt Date: 20210604
  Transmission Date: 20210717
  Serious: Yes (Other)
  Sender: FDA-Public Use
  Company Number: US-ASTRAZENECA-2021A330588

PATIENT
  Age: 67 Year
  Sex: Female
  Weight: 62.5 kg

DRUGS (1)
  1. BYDUREON BCISE [Suspect]
     Active Substance: EXENATIDE
     Indication: TYPE 2 DIABETES MELLITUS
     Route: 058
     Dates: start: 201901

REACTIONS (4)
  - Cerebral disorder [Unknown]
  - Incorrect dose administered by device [Unknown]
  - Injection site extravasation [Unknown]
  - Device malfunction [Unknown]

NARRATIVE: CASE EVENT DATE: 2020
